FAERS Safety Report 7462131-1 (Version None)
Quarter: 2011Q2

REPORT INFORMATION
  Report Type: 
  Country: None (occurrence: None)
  Receive Date: 20110427
  Receipt Date: 20110415
  Transmission Date: 20111010
  Serious: Yes (Life-Threatening)
  Sender: FDA-Public Use
  Company Number: CRC-11-092

PATIENT
  Age: 8 Year
  Sex: Male

DRUGS (1)
  1. OXCARBAZEPINE [Suspect]
     Dosage: SEVEN DOSES, ORALLY
     Route: 048

REACTIONS (3)
  - INCORRECT DOSE ADMINISTERED [None]
  - DRUG DISPENSING ERROR [None]
  - VOMITING [None]
